FAERS Safety Report 4919026-4 (Version None)
Quarter: 2006Q1

REPORT INFORMATION
  Report Type: 
  Country: None (occurrence: None)
  Receive Date: 20060222
  Receipt Date: 20030331
  Transmission Date: 20060701
  Serious: Yes (Hospitalization)
  Sender: FDA-Public Use
  Company Number: PHHO2003AU04316

PATIENT
  Age: 23 Year
  Sex: Male
  Weight: 61 kg

DRUGS (14)
  1. ERL080A [Suspect]
     Indication: RENAL TRANSPLANT
     Dosage: 720 MG, BID
     Route: 048
     Dates: start: 20030224
  2. NEORAL [Suspect]
     Indication: RENAL TRANSPLANT
     Dosage: 150 MG, BID
     Route: 048
     Dates: start: 20030325
  3. SLOW-K [Suspect]
     Dates: start: 20030305, end: 20030328
  4. DILTIAZEM HCL [Suspect]
     Dosage: 180 MG/D
     Route: 048
     Dates: start: 20030325
  5. PREDNISONE [Concomitant]
  6. NYSTATIN [Concomitant]
  7. CAPTOPRIL [Concomitant]
  8. SAVACOL [Concomitant]
  9. RANITIDINE [Concomitant]
  10. COTRIM [Concomitant]
  11. ATENOLOL [Concomitant]
  12. SODIBIC [Concomitant]
  13. MAGNESIUM ASPARTATE [Concomitant]
  14. PRAZOSIN [Concomitant]

REACTIONS (4)
  - BLOOD CREATININE INCREASED [None]
  - BLOOD POTASSIUM INCREASED [None]
  - DEHYDRATION [None]
  - NEPHROPATHY TOXIC [None]
